FAERS Safety Report 10069062 (Version 1)
Quarter: 2014Q2

REPORT INFORMATION
  Report Type: Spontaneous
  Country: AU (occurrence: AU)
  Receive Date: 20140409
  Receipt Date: 20140409
  Transmission Date: 20141212
  Serious: Yes (Death, Hospitalization)
  Sender: FDA-Public Use
  Company Number: PHHY2014AU040257

PATIENT
  Age: 60 Year
  Sex: Male

DRUGS (18)
  1. OLANZAPINE [Suspect]
     Indication: AGITATION
  2. OLANZAPINE [Suspect]
     Indication: AGGRESSION
  3. RISPERIDONE [Suspect]
     Indication: AGITATION
  4. RISPERIDONE [Suspect]
     Indication: AGGRESSION
  5. VENLAFAXINE [Suspect]
     Indication: AGGRESSION
  6. ZUCLOPENTHIXOL ACETATE [Suspect]
     Indication: AGITATION
  7. ZUCLOPENTHIXOL ACETATE [Suspect]
     Indication: AGGRESSION
  8. VALPROIC ACID [Suspect]
     Indication: AGGRESSION
  9. CLONAZEPAM [Suspect]
     Indication: AGITATION
  10. CLONAZEPAM [Suspect]
     Indication: AGGRESSION
  11. HALOPERIDOL [Suspect]
     Indication: AGGRESSION
     Route: 030
  12. HALOPERIDOL [Suspect]
     Dosage: 60 MG DAILY IN DIVIDED DOSES
  13. HALOPERIDOL [Suspect]
     Dosage: 20 MG DAILY
  14. HALOPERIDOL [Suspect]
     Dosage: 30 MG DAILY
  15. HALOPERIDOL [Suspect]
     Dosage: 40 MG DAILY
  16. PREDNISOLONE [Suspect]
     Indication: HASHIMOTO^S ENCEPHALOPATHY
  17. QUETIAPINE [Suspect]
     Indication: AGGRESSION
  18. OXAZEPAM [Suspect]
     Indication: AGGRESSION

REACTIONS (20)
  - Death [Fatal]
  - General physical health deterioration [Unknown]
  - Suicidal ideation [Unknown]
  - Abnormal behaviour [Unknown]
  - Extrapyramidal disorder [Unknown]
  - Tremor [Unknown]
  - Muscle rigidity [Unknown]
  - Gait disturbance [Unknown]
  - Bradykinesia [Unknown]
  - Dysphagia [Unknown]
  - Sedation [Unknown]
  - Hypophagia [Unknown]
  - Fluid intake reduced [Unknown]
  - Injury [Unknown]
  - Somnolence [Unknown]
  - Sepsis [Unknown]
  - Pyrexia [Unknown]
  - Aggression [Unknown]
  - Drug effect incomplete [Unknown]
  - Drug ineffective [Unknown]
